FAERS Safety Report 10522459 (Version 1)
Quarter: 2014Q4

REPORT INFORMATION
  Report Type: Spontaneous
  Country: US (occurrence: None)
  Receive Date: 20141014
  Receipt Date: 20141014
  Transmission Date: 20150528
  Serious: Yes (Life-Threatening, Hospitalization)
  Sender: FDA-Public Use
  Company Number: None

PATIENT
  Age: 66 Year
  Sex: Male
  Weight: 77.7 kg

DRUGS (1)
  1. WARFARIN [Suspect]
     Active Substance: WARFARIN
     Indication: ATRIAL FIBRILLATION
     Route: 048
     Dates: start: 20091001, end: 20140522

REACTIONS (5)
  - Diarrhoea [None]
  - Gastric haemorrhage [None]
  - Anaemia [None]
  - International normalised ratio abnormal [None]
  - Haemorrhage [None]

NARRATIVE: CASE EVENT DATE: 20140521
